FAERS Safety Report 8619254-0 (Version None)
Quarter: 2012Q3

REPORT INFORMATION
  Report Type: 
  Country: None (occurrence: None)
  Receive Date: 20120816
  Receipt Date: 20120816
  Transmission Date: 20120928
  Serious: Yes (Hospitalization)
  Sender: FDA-Public Use
  Company Number: None

PATIENT
  Age: 67 Year
  Sex: Male
  Weight: 70.8 kg

DRUGS (2)
  1. WARFARIN SODIUM [Suspect]
     Dosage: 8 MG, HS, PO
     Route: 048
     Dates: start: 20120327, end: 20120803
  2. AMLODIPINE [Suspect]
     Dates: start: 20120724, end: 20120803

REACTIONS (3)
  - INTERNATIONAL NORMALISED RATIO INCREASED [None]
  - ILL-DEFINED DISORDER [None]
  - GASTRIC HAEMORRHAGE [None]
